FAERS Safety Report 6205048-2 (Version None)
Quarter: 2009Q2

REPORT INFORMATION
  Report Type: 
  Country: None (occurrence: None)
  Receive Date: 20090527
  Receipt Date: 20090217
  Transmission Date: 20091009
  Serious: No
  Sender: FDA-Public Use
  Company Number: US-ABBOTT-09P-163-0557997-00

PATIENT
  Sex: Female
  Weight: 73.548 kg

DRUGS (5)
  1. SIMCOR [Suspect]
     Indication: BLOOD CHOLESTEROL INCREASED
     Dosage: 1000/20MG
     Dates: start: 20080501
  2. PLAVIX [Suspect]
     Indication: CEREBROVASCULAR ACCIDENT
     Dates: start: 20090101
  3. REQUIP [Concomitant]
     Indication: RESTLESS LEGS SYNDROME
  4. EVISTA [Concomitant]
     Indication: OSTEOPOROSIS PROPHYLAXIS
  5. BUPROPION HCL [Concomitant]
     Indication: DRUG USE FOR UNKNOWN INDICATION

REACTIONS (7)
  - ASTHENIA [None]
  - BACK PAIN [None]
  - FLUSHING [None]
  - HEMIPARESIS [None]
  - MYALGIA [None]
  - PRURITUS [None]
  - TRANSIENT ISCHAEMIC ATTACK [None]
